FAERS Safety Report 4531915-1 (Version None)
Quarter: 2004Q4

REPORT INFORMATION
  Report Type: 
  Country: None (occurrence: None)
  Receive Date: 20041216
  Receipt Date: 20041207
  Transmission Date: 20050328
  Serious: Yes (Other)
  Sender: FDA-Public Use
  Company Number: HQWYE856708DEC04

PATIENT
  Sex: Male

DRUGS (2)
  1. EFFEXOR XR (VENLAFAXINE HYDROCHLORIDE, CAPSULE, SUICIDAL RELEASE) [Suspect]
     Indication: DEPRESSION
     Dosage: 150 MG 1X PER 1 DAY, ORAL
     Route: 048
     Dates: end: 20041204
  2. EFFEXOR XR (VENLAFAXINE HYDROCHLORIDE, CAPSULE, SUICIDAL RELEASE) [Suspect]
     Indication: SUICIDAL IDEATION
     Dosage: 150 MG 1X PER 1 DAY, ORAL
     Route: 048
     Dates: end: 20041204

REACTIONS (9)
  - AGITATION [None]
  - CONDITION AGGRAVATED [None]
  - DRUG DEPENDENCE [None]
  - DRUG WITHDRAWAL SYNDROME [None]
  - FEELING ABNORMAL [None]
  - HYPOAESTHESIA ORAL [None]
  - PARAESTHESIA [None]
  - SUICIDAL IDEATION [None]
  - TREATMENT NONCOMPLIANCE [None]
